FAERS Safety Report 25540781 (Version 3)
Quarter: 2025Q3

REPORT INFORMATION
  Report Type: Spontaneous
  Country: EU (occurrence: EU)
  Receive Date: 20250710
  Receipt Date: 20250724
  Transmission Date: 20251021
  Serious: Yes (Other)
  Sender: MYLAN
  Company Number: EU-BRISTOL-MYERS SQUIBB COMPANY-2025-087212

PATIENT
  Age: 86 Year
  Sex: Female

DRUGS (8)
  1. APIXABAN [Suspect]
     Active Substance: APIXABAN
     Indication: Atrial flutter
  2. APIXABAN [Suspect]
     Active Substance: APIXABAN
     Route: 048
  3. APIXABAN [Suspect]
     Active Substance: APIXABAN
     Route: 048
  4. APIXABAN [Suspect]
     Active Substance: APIXABAN
  5. DABIGATRAN [Suspect]
     Active Substance: DABIGATRAN
     Indication: Atrial fibrillation
  6. DABIGATRAN [Suspect]
     Active Substance: DABIGATRAN
     Route: 048
  7. DABIGATRAN [Suspect]
     Active Substance: DABIGATRAN
     Route: 048
  8. DABIGATRAN [Suspect]
     Active Substance: DABIGATRAN

REACTIONS (1)
  - Oesophagitis [Recovering/Resolving]
